FAERS Safety Report 10246941 (Version 1)
Quarter: 2014Q2

REPORT INFORMATION
  Report Type: Spontaneous
  Country: US (occurrence: None)
  Receive Date: 20140617
  Receipt Date: 20140617
  Transmission Date: 20141212
  Serious: Yes (Hospitalization)
  Sender: FDA-Public Use
  Company Number: None

PATIENT
  Age: 37 Year
  Sex: Male

DRUGS (14)
  1. BRENTUXIMAB VEDOTIN [Suspect]
     Indication: SYSTEMIC MASTOCYTOSIS
     Dosage: 1.8 MG/KG  IV X 30MIN
     Route: 042
     Dates: start: 20140509, end: 20140530
  2. LEVOTHYROXINE [Concomitant]
  3. ZOFRAN [Concomitant]
  4. PREDNISONE [Concomitant]
  5. ALLOPURINOL [Concomitant]
  6. LOVENOX [Concomitant]
  7. POTASSIUM CHLORIDE [Concomitant]
  8. CALCIUM CARBONATE/VITAMIN D3 [Concomitant]
  9. CROMOLYN [Concomitant]
  10. TEMAZEPAM [Concomitant]
  11. CIMETIDINE [Concomitant]
  12. PREVACID [Concomitant]
  13. LORATADINE [Concomitant]
  14. VICODIN [Concomitant]

REACTIONS (6)
  - Mental status changes [None]
  - Fall [None]
  - Dehydration [None]
  - Portal vein thrombosis [None]
  - Mesenteric vein thrombosis [None]
  - Nutritional condition abnormal [None]
